FAERS Safety Report 19082939 (Version 1)
Quarter: 2021Q2

REPORT INFORMATION
  Report Type: Report from Study
  Country: GB (occurrence: GB)
  Receive Date: 20210401
  Receipt Date: 20210401
  Transmission Date: 20210717
  Serious: Yes (Other)
  Sender: FDA-Public Use
  Company Number: NVSC2021GB069549

PATIENT
  Sex: Male

DRUGS (1)
  1. HYRIMOZ [Suspect]
     Active Substance: ADALIMUMAB-ADAZ
     Indication: ANKYLOSING SPONDYLITIS
     Dosage: 40 MG, Q2W
     Route: 058
     Dates: start: 202102

REACTIONS (9)
  - Choking [Unknown]
  - Balance disorder [Unknown]
  - Dizziness [Unknown]
  - Dyspnoea [Unknown]
  - COVID-19 [Unknown]
  - Cough [Unknown]
  - Arthralgia [Unknown]
  - Headache [Unknown]
  - Anosmia [Unknown]
